FAERS Safety Report 5632198-1 (Version None)
Quarter: 2008Q1

REPORT INFORMATION
  Report Type: 
  Country: None (occurrence: None)
  Receive Date: 20080220
  Receipt Date: 20080215
  Transmission Date: 20080703
  Serious: Yes (Other)
  Sender: FDA-Public Use
  Company Number: CA-ASTRAZENECA-2008UW03232

PATIENT
  Sex: Female

DRUGS (3)
  1. ARIMIDEX [Suspect]
     Route: 048
  2. TRILEPTAL [Concomitant]
     Dosage: 3, TID
  3. RISPERDAL [Concomitant]

REACTIONS (4)
  - BLINDNESS [None]
  - EYE DISORDER [None]
  - SYNCOPE [None]
  - VISUAL DISTURBANCE [None]
